FAERS Safety Report 14804220 (Version 3)
Quarter: 2018Q4

REPORT INFORMATION
  Report Type: Spontaneous
  Country: FR (occurrence: FR)
  Receive Date: 20180425
  Receipt Date: 20181010
  Transmission Date: 20190204
  Serious: Yes (Other)
  Sender: FDA-Public Use
  Company Number: PHHY2018FR027498

PATIENT
  Age: 30 Year
  Sex: Male

DRUGS (3)
  1. METHYLPHENIDATE HYDROCHLORIDE. [Suspect]
     Active Substance: METHYLPHENIDATE HYDROCHLORIDE
     Indication: NARCOLEPSY
     Dosage: 120 MG, QD
     Route: 065
  2. MODAFINIL. [Suspect]
     Active Substance: MODAFINIL
     Indication: NARCOLEPSY
     Dosage: 600 MG, QD
     Route: 065
  3. PITOLISANT [Concomitant]
     Active Substance: PITOLISANT
     Indication: NARCOLEPSY
     Dosage: 40 MG, QD
     Route: 065

REACTIONS (5)
  - Schizotypal personality disorder [Unknown]
  - Psychotic symptom [Unknown]
  - Psychotic disorder [Unknown]
  - Intentional product misuse [Unknown]
  - Hallucination, auditory [Unknown]
